FAERS Safety Report 24043024 (Version 1)
Quarter: 2024Q3

REPORT INFORMATION
  Report Type: Report from Study
  Country: US (occurrence: US)
  Receive Date: 20240702
  Receipt Date: 20240702
  Transmission Date: 20241017
  Serious: Yes (Other)
  Sender: EISAI
  Company Number: US-Eisai-EC-2024-169330

PATIENT
  Age: 58 Year
  Sex: Male
  Weight: 65.76 kg

DRUGS (13)
  1. LENVIMA [Suspect]
     Active Substance: LENVATINIB
     Indication: Renal cell carcinoma
     Dosage: DOSAGE AND FREQUENCY UNKNOWN
     Route: 048
     Dates: end: 20240408
  2. LENVIMA [Suspect]
     Active Substance: LENVATINIB
     Indication: Metastases to lung
     Route: 048
     Dates: start: 20240409
  3. LENVIMA [Suspect]
     Active Substance: LENVATINIB
     Indication: Metastases to liver
  4. LENVIMA [Suspect]
     Active Substance: LENVATINIB
     Indication: Metastases to central nervous system
  5. LENVIMA [Suspect]
     Active Substance: LENVATINIB
     Indication: Metastases to bladder
  6. LENVIMA [Suspect]
     Active Substance: LENVATINIB
     Indication: Metastases to bone
  7. CABOMETYX [Suspect]
     Active Substance: CABOZANTINIB S-MALATE
     Indication: Renal cell carcinoma
     Route: 048
     Dates: start: 20230221
  8. CABOMETYX [Suspect]
     Active Substance: CABOZANTINIB S-MALATE
     Indication: Metastases to bladder
  9. CABOMETYX [Suspect]
     Active Substance: CABOZANTINIB S-MALATE
     Indication: Metastases to lung
  10. CABOMETYX [Suspect]
     Active Substance: CABOZANTINIB S-MALATE
     Indication: Metastases to bone
  11. CABOMETYX [Suspect]
     Active Substance: CABOZANTINIB S-MALATE
     Indication: Metastases to central nervous system
  12. CABOMETYX [Suspect]
     Active Substance: CABOZANTINIB S-MALATE
     Indication: Metastases to liver
  13. EDARBYCLOR [Concomitant]
     Active Substance: AZILSARTAN KAMEDOXOMIL\CHLORTHALIDONE
     Indication: Product used for unknown indication
     Dosage: DOSAGE AND FREQUENCY UNKNOWN
     Route: 065

REACTIONS (2)
  - Seizure [Recovering/Resolving]
  - Diarrhoea [Recovering/Resolving]

NARRATIVE: CASE EVENT DATE: 20240401
